FAERS Safety Report 7874581-X (Version None)
Quarter: 2011Q4

REPORT INFORMATION
  Report Type: 
  Country: None (occurrence: None)
  Receive Date: 20111031
  Receipt Date: 20111025
  Transmission Date: 20120403
  Serious: Yes (Other)
  Sender: FDA-Public Use
  Company Number: US-PFIZER INC-2011261708

PATIENT
  Sex: Female
  Weight: 53.515 kg

DRUGS (6)
  1. LYRICA [Suspect]
     Indication: TRIGEMINAL NEURALGIA
     Dosage: 50MG, DAILY
     Dates: start: 20111022
  2. XANAX [Suspect]
     Indication: ANXIETY
     Dosage: SPLITTING 0.5MG TABLET, TAKING HALF IN MORNING AND FULL TABLE IN NIGHT TWO TIMES
     Route: 048
  3. WARFARIN [Concomitant]
     Indication: CARDIAC OPERATION
     Dosage: 1 MG, DAILY
  4. ASCORBIC ACID [Concomitant]
  5. ASPIRIN [Concomitant]
     Indication: CARDIAC OPERATION
     Dosage: 81MG, DAILY
  6. FISH OIL [Concomitant]

REACTIONS (2)
  - CONSTIPATION [None]
  - ANEURYSM [None]
